FAERS Safety Report 10783696 (Version 3)
Quarter: 2016Q2

REPORT INFORMATION
  Report Type: Report from Study
  Country: JP (occurrence: JP)
  Receive Date: 20150210
  Receipt Date: 20160411
  Transmission Date: 20160815
  Serious: Yes (Hospitalization, Other)
  Sender: FDA-Public Use
  Company Number: JP-GLAXOSMITHKLINE-JP2015JPN008680

PATIENT
  Age: 26 Year
  Sex: Female
  Weight: 65 kg

DRUGS (4)
  1. MYSTAN [Concomitant]
     Active Substance: CLOBAZAM
     Indication: EPILEPSY
     Dosage: 50 MG, BID
  2. DEPAKENE [Concomitant]
     Active Substance: VALPROIC ACID
     Indication: EPILEPSY
     Dosage: UNK UNK, BID
  3. LAMOTRIGINE. [Suspect]
     Active Substance: LAMOTRIGINE
     Indication: EPILEPSY
     Dosage: 25 MG, QOD
     Route: 048
     Dates: start: 20141206, end: 20141219
  4. LAMOTRIGINE. [Suspect]
     Active Substance: LAMOTRIGINE
     Dosage: 25 MG, QD
     Route: 048
     Dates: start: 20141220, end: 20150115

REACTIONS (19)
  - Liver scan abnormal [Unknown]
  - Flushing [Recovering/Resolving]
  - Pyrexia [Recovered/Resolved]
  - Decreased appetite [Unknown]
  - Papule [Recovering/Resolving]
  - Rash generalised [Recovering/Resolving]
  - Eosinophil count increased [Recovering/Resolving]
  - Lymphocyte morphology abnormal [Recovering/Resolving]
  - Drug reaction with eosinophilia and systemic symptoms [Recovered/Resolved]
  - Oropharyngeal pain [Unknown]
  - Pruritus [Recovering/Resolving]
  - Liver disorder [Recovered/Resolved]
  - Lymphadenopathy [Recovered/Resolved]
  - Skin exfoliation [Recovering/Resolving]
  - Hepatitis acute [Unknown]
  - Dermatitis exfoliative [Recovering/Resolving]
  - Drug eruption [Unknown]
  - Generalised erythema [Recovering/Resolving]
  - Coating in mouth [Recovering/Resolving]

NARRATIVE: CASE EVENT DATE: 201501
